FAERS Safety Report 14393126 (Version 8)
Quarter: 2018Q4

REPORT INFORMATION
  Report Type: Report from Study
  Country: DE (occurrence: DE)
  Receive Date: 20180116
  Receipt Date: 20181009
  Transmission Date: 20190204
  Serious: Yes (Hospitalization, Other)
  Sender: FDA-Public Use
  Company Number: DE-TEVA-2018-DE-843848

PATIENT
  Age: 34 Month
  Sex: Male
  Weight: 12.2 kg

DRUGS (68)
  1. VINCRISTINE [Suspect]
     Active Substance: VINCRISTINE
     Indication: PHILADELPHIA CHROMOSOME POSITIVE
     Dosage: DAILY DOSE: 0.8 MG MILLIGRAM(S) EVERY
     Route: 042
     Dates: start: 20160310
  2. VINCRISTINE [Suspect]
     Active Substance: VINCRISTINE
     Dosage: DAILY DOSE: 0.8 MG MILLIGRAM(S) EVERY
     Route: 042
     Dates: start: 20160620
  3. DOXORUBICIN [Suspect]
     Active Substance: DOXORUBICIN
     Indication: ACUTE LYMPHOCYTIC LEUKAEMIA
     Dosage: 13.5 MG, UNK
     Route: 042
  4. ETOPOSIDE. [Suspect]
     Active Substance: ETOPOSIDE
     Indication: PHILADELPHIA CHROMOSOME POSITIVE
  5. ASPARAGINASE [Suspect]
     Active Substance: ASPARAGINASE
     Indication: ACUTE LYMPHOCYTIC LEUKAEMIA
     Dosage: 5400 IU, UNK
     Route: 042
  6. ASPARAGINASE [Suspect]
     Active Substance: ASPARAGINASE
     Route: 042
     Dates: start: 20160630
  7. ASPARAGINASE [Suspect]
     Active Substance: ASPARAGINASE
     Dosage: 13500 IU (INTERNATIONAL UNIT) DAILY; DAILY DOSE: 13500 IU INTERNATIONAL UNIT(S) EVERY DAY
     Route: 042
     Dates: start: 20151223, end: 20151223
  8. ASPARAGINASE [Suspect]
     Active Substance: ASPARAGINASE
     Dosage: 5400 IU, UNK
     Route: 042
     Dates: start: 20160620
  9. CYTARABINE. [Suspect]
     Active Substance: CYTARABINE
     Indication: PHILADELPHIA CHROMOSOME POSITIVE
     Dosage: 41 MILLIGRAM DAILY; DAILY DOSE: 41 MG MILLIGRAM(S) EVERY DAY
     Route: 042
     Dates: start: 20151109, end: 20151112
  10. GLIVEC [Suspect]
     Active Substance: IMATINIB MESYLATE
     Indication: ACUTE LYMPHOCYTIC LEUKAEMIA
     Dosage: 150 MILLIGRAM DAILY;
     Route: 048
     Dates: start: 20150921, end: 20170307
  11. GLIVEC [Suspect]
     Active Substance: IMATINIB MESYLATE
     Indication: SYSTEMIC SCLERODERMA
  12. CYCLOPHOSPHAMIDE. [Suspect]
     Active Substance: CYCLOPHOSPHAMIDE
     Indication: PHILADELPHIA CHROMOSOME POSITIVE
     Dosage: 550 MILLIGRAM DAILY; DAILY DOSE: 550 MG MILLIGRAM(S) EVERY DAY
     Route: 042
     Dates: start: 20151203, end: 20151203
  13. DAUNORUBICIN [Suspect]
     Active Substance: DAUNORUBICIN
     Indication: PHILADELPHIA CHROMOSOME POSITIVE
     Dosage: 16 MILLIGRAM DAILY;
     Route: 042
     Dates: start: 20160118, end: 20160119
  14. VINCRISTINE [Suspect]
     Active Substance: VINCRISTINE
     Dosage: 1.6 MG, UNK
     Route: 042
     Dates: start: 20160119, end: 20160119
  15. VINCRISTINE [Suspect]
     Active Substance: VINCRISTINE
     Route: 042
     Dates: start: 20151218
  16. DOXORUBICIN [Suspect]
     Active Substance: DOXORUBICIN
     Dosage: 13.5 MG, UNK
     Route: 042
     Dates: start: 20160627
  17. DOXORUBICIN [Suspect]
     Active Substance: DOXORUBICIN
     Route: 042
     Dates: start: 20160303
  18. ETOPOSIDE. [Suspect]
     Active Substance: ETOPOSIDE
     Indication: ACUTE LYMPHOCYTIC LEUKAEMIA
     Dosage: 52 MG, (5 APPLICATIONS TO 52 MG
     Route: 042
     Dates: start: 20160206, end: 20160208
  19. CYTARABINE. [Suspect]
     Active Substance: CYTARABINE
     Dosage: 42 MG, UNK
     Route: 042
  20. GLIVEC [Suspect]
     Active Substance: IMATINIB MESYLATE
     Indication: PHILADELPHIA CHROMOSOME POSITIVE
  21. MERCAPTOPURINE. [Suspect]
     Active Substance: MERCAPTOPURINE
     Indication: PRODUCT USED FOR UNKNOWN INDICATION
     Route: 048
     Dates: start: 20130913
  22. DOXORUBICIN [Suspect]
     Active Substance: DOXORUBICIN
     Dosage: 13.5 MG, UNK
     Route: 042
     Dates: start: 20160620
  23. DOXORUBICIN [Suspect]
     Active Substance: DOXORUBICIN
     Dosage: 13.5 MG, UNK
     Route: 042
     Dates: start: 20160324
  24. METHOTREXATE. [Suspect]
     Active Substance: METHOTREXATE
     Dosage: REGULARY APPLICATION VIA THERAPY ELEMENT HR3
     Route: 037
     Dates: start: 20160208
  25. ASPARAGINASE [Suspect]
     Active Substance: ASPARAGINASE
     Indication: PHILADELPHIA CHROMOSOME POSITIVE
     Dosage: 5400 IU, UNK
     Route: 042
     Dates: start: 20160313
  26. ASPARAGINASE [Suspect]
     Active Substance: ASPARAGINASE
     Route: 042
     Dates: start: 20160627
  27. ASPARAGINASE [Suspect]
     Active Substance: ASPARAGINASE
     Dosage: 13000 IU (INTERNATIONAL UNIT) DAILY; DAILY DOSE: 13000 IU INTERNATIONAL UNIT(S) EVERY DAY
     Route: 042
     Dates: start: 20160209, end: 20160209
  28. CYTARABINE. [Suspect]
     Active Substance: CYTARABINE
     Indication: ACUTE LYMPHOCYTIC LEUKAEMIA
     Dosage: 41 MILLIGRAM DAILY; DAILY DOSE: 41 MG MILLIGRAM(S) EVERY DAY
     Route: 042
     Dates: start: 20151026, end: 20151029
  29. CYTARABINE. [Suspect]
     Active Substance: CYTARABINE
     Route: 042
  30. CYTARABINE. [Suspect]
     Active Substance: CYTARABINE
     Route: 037
     Dates: start: 20160208, end: 20160208
  31. CYTARABINE. [Suspect]
     Active Substance: CYTARABINE
     Dates: end: 20160811
  32. IFOSFAMIDE. [Suspect]
     Active Substance: IFOSFAMIDE
     Indication: ACUTE LYMPHOCYTIC LEUKAEMIA
     Dosage: 416 MILLIGRAM DAILY; DAILY DOSE: 416 MG MILLIGRAM(S) EVERY DAY
     Route: 042
     Dates: start: 20160115, end: 20160117
  33. VINCRISTINE [Suspect]
     Active Substance: VINCRISTINE
     Indication: ACUTE LYMPHOCYTIC LEUKAEMIA
     Dosage: DAILY DOSE: 0.8 MG MILLIGRAM(S) EVERY
     Route: 042
     Dates: start: 20160704
  34. VINCRISTINE [Suspect]
     Active Substance: VINCRISTINE
     Indication: ACUTE LYMPHOCYTIC LEUKAEMIA
     Route: 042
     Dates: start: 20160712
  35. VINCRISTINE [Suspect]
     Active Substance: VINCRISTINE
     Route: 042
     Dates: start: 20151223, end: 20151223
  36. DOXORUBICIN [Suspect]
     Active Substance: DOXORUBICIN
     Dosage: 13.5 MG, UNK
     Route: 042
     Dates: start: 20160712
  37. ASPARAGINASE [Suspect]
     Active Substance: ASPARAGINASE
     Route: 042
  38. CYTARABINE. [Suspect]
     Active Substance: CYTARABINE
     Dosage: 2160 MG, QD
     Route: 042
     Dates: start: 20151221
  39. CYCLOPHOSPHAMIDE. [Suspect]
     Active Substance: CYCLOPHOSPHAMIDE
     Route: 042
     Dates: start: 20151219, end: 20151221
  40. VINDESINE [Suspect]
     Active Substance: VINDESINE
     Indication: PHILADELPHIA CHROMOSOME POSITIVE
     Route: 042
     Dates: start: 20160119, end: 20160119
  41. METHOTREXATE. [Suspect]
     Active Substance: METHOTREXATE
     Indication: PHILADELPHIA CHROMOSOME POSITIVE
     Dosage: 2600 MILLIGRAM DAILY; DAILY DOSE: 2600 MG MILLIGRAM(S) EVERY DAY
     Route: 042
     Dates: start: 20160114, end: 20160115
  42. CYTARABINE. [Suspect]
     Active Substance: CYTARABINE
     Dosage: 2160 MILLIGRAM DAILY; DAILY DOSE: 2160 MG MILLIGRAM(S) EVERY DAY
     Route: 042
     Dates: start: 20151221
  43. DOXORUBICIN [Suspect]
     Active Substance: DOXORUBICIN
     Indication: PHILADELPHIA CHROMOSOME POSITIVE
     Route: 042
     Dates: start: 20160704
  44. METHOTREXATE. [Suspect]
     Active Substance: METHOTREXATE
     Indication: ACUTE LYMPHOCYTIC LEUKAEMIA
     Dosage: 2700 MILLIGRAM DAILY; DAILY DOSE: 2700 MG MILLIGRAM(S) EVERY DAY
     Route: 042
     Dates: start: 20151218, end: 20151219
  45. METHOTREXATE. [Suspect]
     Active Substance: METHOTREXATE
     Indication: ACUTE LYMPHOCYTIC LEUKAEMIA
     Dosage: 2700 MILLIGRAM DAILY; DAILY DOSE: 2700 MG MILLIGRAM(S) EVERY DAY
     Route: 042
     Dates: start: 20151218, end: 20151219
  46. METHOTREXATE. [Suspect]
     Active Substance: METHOTREXATE
     Route: 048
     Dates: start: 20160913
  47. ASPARAGINASE [Suspect]
     Active Substance: ASPARAGINASE
     Route: 042
     Dates: start: 20160310
  48. ASPARAGINASE [Suspect]
     Active Substance: ASPARAGINASE
     Dosage: 1300 IU (INTERNATIONAL UNIT) DAILY; DAILY DOSE: 1300 IU INTERNATIONAL UNIT(S) EVERY DAY
     Route: 042
     Dates: start: 20160303
  49. ASPARAGINASE [Suspect]
     Active Substance: ASPARAGINASE
     Route: 042
  50. CYTARABINE. [Suspect]
     Active Substance: CYTARABINE
     Route: 042
  51. CYTARABINE. [Suspect]
     Active Substance: CYTARABINE
     Dosage: 41 MILLIGRAM DAILY; DAILY DOSE: 41 MG MILLIGRAM(S) EVERY DAY
     Route: 042
     Dates: start: 20151102, end: 20151105
  52. CYCLOPHOSPHAMIDE. [Suspect]
     Active Substance: CYCLOPHOSPHAMIDE
     Indication: ACUTE LYMPHOCYTIC LEUKAEMIA
     Dosage: 550 MILLIGRAM DAILY; DAILY DOSE: 550 MG MILLIGRAM(S) EVERY DAY
     Route: 042
     Dates: start: 20151017, end: 20151017
  53. DAUNORUBICIN [Suspect]
     Active Substance: DAUNORUBICIN
     Indication: ACUTE LYMPHOCYTIC LEUKAEMIA
  54. VINDESINE [Suspect]
     Active Substance: VINDESINE
     Indication: ACUTE LYMPHOCYTIC LEUKAEMIA
     Route: 042
     Dates: start: 20160114
  55. VINCRISTINE [Suspect]
     Active Substance: VINCRISTINE
     Route: 042
     Dates: start: 20160627
  56. VINCRISTINE [Suspect]
     Active Substance: VINCRISTINE
     Route: 042
     Dates: start: 20160114
  57. CYTARABINE. [Suspect]
     Active Substance: CYTARABINE
     Dosage: 41 MILLIGRAM DAILY; DAILY DOSE: 41 MG MILLIGRAM(S) EVERY DAY
     Route: 042
     Dates: start: 20151019, end: 20151222
  58. CYTARABINE. [Suspect]
     Active Substance: CYTARABINE
     Route: 042
     Dates: start: 20160204, end: 20160206
  59. CYCLOPHOSPHAMIDE. [Suspect]
     Active Substance: CYCLOPHOSPHAMIDE
     Dosage: 570 MG, UNK
     Route: 042
     Dates: start: 20160730, end: 20160730
  60. CYCLOPHOSPHAMIDE. [Suspect]
     Active Substance: CYCLOPHOSPHAMIDE
     Dosage: 560 MG, UNK
     Route: 042
     Dates: start: 20160416, end: 20160416
  61. VINCRISTINE [Suspect]
     Active Substance: VINCRISTINE
     Indication: PHILADELPHIA CHROMOSOME POSITIVE
     Dosage: DAILY DOSE: 0.8 MG MILLIGRAM(S) EVERY
     Route: 042
     Dates: start: 20160317
  62. VINCRISTINE [Suspect]
     Active Substance: VINCRISTINE
     Dosage: DAILY DOSE: 0.8 MG MILLIGRAM(S) EVERY
     Route: 042
     Dates: start: 20160324
  63. VINCRISTINE [Suspect]
     Active Substance: VINCRISTINE
     Dosage: DAILY DOSE: 0.8 MG MILLIGRAM(S) EVERY
     Route: 042
     Dates: start: 20160303, end: 20160303
  64. DOXORUBICIN [Suspect]
     Active Substance: DOXORUBICIN
     Dosage: 13.5 MG, UNK
     Route: 042
     Dates: start: 20160310
  65. METHOTREXATE. [Suspect]
     Active Substance: METHOTREXATE
     Indication: PRODUCT USED FOR UNKNOWN INDICATION
     Route: 042
     Dates: start: 20140114, end: 20150115
  66. ASPARAGINASE [Suspect]
     Active Substance: ASPARAGINASE
     Dosage: 5400 IU, UNK
     Route: 042
     Dates: start: 20160306
  67. CYTARABINE. [Suspect]
     Active Substance: CYTARABINE
     Route: 042
  68. IFOSFAMIDE. [Suspect]
     Active Substance: IFOSFAMIDE
     Indication: PHILADELPHIA CHROMOSOME POSITIVE

REACTIONS (22)
  - Infectious colitis [Unknown]
  - Pyrexia [Recovered/Resolved]
  - Hypoxia [Recovered/Resolved]
  - Hypoxia [Unknown]
  - Constipation [Unknown]
  - Lymphopenia [Unknown]
  - Febrile neutropenia [Recovered/Resolved]
  - Neutropenia [Recovered/Resolved]
  - Febrile neutropenia [Recovered/Resolved]
  - Stomatitis [Unknown]
  - Neutropenia [Recovered/Resolved]
  - Neutropenia [Recovered/Resolved]
  - Upper respiratory tract infection [Recovered/Resolved]
  - Pruritus [Unknown]
  - Muscular weakness [Unknown]
  - Neutropenia [Recovered/Resolved]
  - Febrile neutropenia [Recovered/Resolved]
  - Febrile neutropenia [Recovered/Resolved]
  - Urinary tract infection [Unknown]
  - Pyrexia [Unknown]
  - Febrile neutropenia [Recovered/Resolved]
  - Neutropenia [Recovered/Resolved]

NARRATIVE: CASE EVENT DATE: 20151110
